FAERS Safety Report 4853125-0 (Version None)
Quarter: 2005Q4

REPORT INFORMATION
  Report Type: 
  Country: None (occurrence: None)
  Receive Date: 20051212
  Receipt Date: 20051202
  Transmission Date: 20060501
  Serious: Yes (Hospitalization, Other)
  Sender: FDA-Public Use
  Company Number: GBWYE877302AUG05

PATIENT
  Sex: Female

DRUGS (9)
  1. EFFEXOR XR [Suspect]
     Indication: MAJOR DEPRESSION
     Dosage: 150MG, FREQUENCY UNKNOWN, TRANSPLACENTAL
     Route: 064
     Dates: start: 20031001
  2. EFFEXOR XR [Suspect]
     Indication: POSTPARTUM DEPRESSION
     Dosage: 150MG, FREQUENCY UNKNOWN, TRANSPLACENTAL
     Route: 064
     Dates: start: 20031001
  3. EFFEXOR XR [Suspect]
     Indication: PSYCHOTIC DISORDER
     Dosage: 150MG, FREQUENCY UNKNOWN, TRANSPLACENTAL
     Route: 064
     Dates: start: 20031001
  4. OLANZAPINE [Suspect]
     Indication: MAJOR DEPRESSION
     Dosage: SEE IMAGE
     Route: 064
     Dates: start: 20050101, end: 20050101
  5. OLANZAPINE [Suspect]
     Indication: POSTPARTUM DEPRESSION
     Dosage: SEE IMAGE
     Route: 064
     Dates: start: 20050101, end: 20050101
  6. OLANZAPINE [Suspect]
     Indication: PSYCHOTIC DISORDER
     Dosage: SEE IMAGE
     Route: 064
     Dates: start: 20050101, end: 20050101
  7. OLANZAPINE [Suspect]
     Indication: MAJOR DEPRESSION
     Dosage: SEE IMAGE
     Route: 064
     Dates: start: 20050101
  8. OLANZAPINE [Suspect]
     Indication: POSTPARTUM DEPRESSION
     Dosage: SEE IMAGE
     Route: 064
     Dates: start: 20050101
  9. OLANZAPINE [Suspect]
     Indication: PSYCHOTIC DISORDER
     Dosage: SEE IMAGE
     Route: 064
     Dates: start: 20050101

REACTIONS (5)
  - DRUG EXPOSURE DURING PREGNANCY [None]
  - FEEDING DISORDER NEONATAL [None]
  - ORAL CANDIDIASIS [None]
  - POOR SUCKING REFLEX [None]
  - SOMNOLENCE NEONATAL [None]
